FAERS Safety Report 5094628-6 (Version None)
Quarter: 2006Q3

REPORT INFORMATION
  Report Type: 
  Country: None (occurrence: None)
  Receive Date: 20060830
  Receipt Date: 20060822
  Transmission Date: 20061208
  Serious: Yes (Death, Hospitalization, Other)
  Sender: FDA-Public Use
  Company Number: US_0501110500

PATIENT
  Age: 42 Year
  Sex: Male
  Weight: 108.8 kg

DRUGS (13)
  1. ZYPREXA [Suspect]
     Indication: SCHIZOAFFECTIVE DISORDER
     Dosage: 5 MG, ORAL; 10 MG, DAILY (1/D), ORAL
     Route: 048
     Dates: start: 19970101, end: 20010101
  2. ZYPREXA [Suspect]
     Indication: SCHIZOAFFECTIVE DISORDER
     Dosage: 5 MG, ORAL; 10 MG, DAILY (1/D), ORAL
     Route: 048
     Dates: start: 20010308
  3. PROZAC (FLUOXETINE FYDROCHLORIDE) [Concomitant]
  4. CELEXA [Concomitant]
  5. ATIVAN [Concomitant]
  6. TRAZODONE HCL [Concomitant]
  7. IBUPROFEN [Concomitant]
  8. PAXIL [Concomitant]
  9. SERZONE [Concomitant]
  10. WELLBUTRIN [Concomitant]
  11. RISPERDAL [Concomitant]
  12. SEROQUEL [Concomitant]
  13. ZOLOFT [Concomitant]

REACTIONS (35)
  - AFFECTIVE DISORDER [None]
  - AGGRESSION [None]
  - ALCOHOLISM [None]
  - ANGER [None]
  - ANOREXIA [None]
  - ASTHENIA [None]
  - CARDIAC FAILURE CONGESTIVE [None]
  - CARDIO-RESPIRATORY ARREST [None]
  - DEEP VEIN THROMBOSIS [None]
  - DEPRESSION [None]
  - DIABETES MELLITUS [None]
  - DIABETIC KETOACIDOSIS [None]
  - DRUG DEPENDENCE [None]
  - ELECTROLYTE IMBALANCE [None]
  - HALLUCINATION, VISUAL [None]
  - HEADACHE [None]
  - HYPERGLYCAEMIA [None]
  - IRRITABILITY [None]
  - LACERATION [None]
  - LIMB INJURY [None]
  - MOOD SWINGS [None]
  - OEDEMA [None]
  - OEDEMA PERIPHERAL [None]
  - PARANOIA [None]
  - PSYCHOTIC DISORDER [None]
  - SCHIZOAFFECTIVE DISORDER [None]
  - SCHIZOPHRENIA, PARANOID TYPE [None]
  - STRESS [None]
  - SUBSTANCE ABUSE [None]
  - SUICIDAL IDEATION [None]
  - SUICIDE ATTEMPT [None]
  - THINKING ABNORMAL [None]
  - THROMBOSIS [None]
  - TOOTHACHE [None]
  - WEIGHT DECREASED [None]
